FAERS Safety Report 4821537-7 (Version None)
Quarter: 2005Q4

REPORT INFORMATION
  Report Type: 
  Country: None (occurrence: None)
  Receive Date: 20051103
  Receipt Date: 20051103
  Transmission Date: 20060501
  Serious: Yes (Other)
  Sender: FDA-Public Use
  Company Number: None

PATIENT
  Sex: Male

DRUGS (7)
  1. SYNVISC (HYLAN GF) [Suspect]
     Indication: OSTEOARTHRITIS
     Dosage: 16MG WEEKLY  INTRAARTICULAR
     Route: 014
  2. SIMVASTATIN [Concomitant]
  3. DIAZIDE [Concomitant]
  4. RABEPRAZOLE SODIUM [Concomitant]
  5. TERAZOSIN [Concomitant]
  6. ATROVENT [Concomitant]
  7. SALSALATE [Concomitant]

REACTIONS (4)
  - DRUG HYPERSENSITIVITY [None]
  - MUSCLE SPASMS [None]
  - OEDEMA PERIPHERAL [None]
  - PAIN [None]
